FAERS Safety Report 17547990 (Version 4)
Quarter: 2020Q2

REPORT INFORMATION
  Report Type: Spontaneous
  Country: US (occurrence: US)
  Receive Date: 20200316
  Receipt Date: 20200515
  Transmission Date: 20200713
  Serious: No
  Sender: FDA-Public Use
  Company Number: US-GLAXOSMITHKLINE-US2020041826

PATIENT
  Age: 85 Year
  Sex: Male

DRUGS (1)
  1. TRELEGY ELLIPTA [Suspect]
     Active Substance: FLUTICASONE FUROATE\UMECLIDINIUM BROMIDE\VILANTEROL TRIFENATATE
     Indication: CHRONIC OBSTRUCTIVE PULMONARY DISEASE
     Dosage: 100/62.5/25 MCG
     Route: 065
     Dates: start: 2019

REACTIONS (7)
  - Cough [Unknown]
  - Extra dose administered [Unknown]
  - Dyspnoea [Unknown]
  - Insomnia [Unknown]
  - Wrong technique in device usage process [Unknown]
  - Product complaint [Unknown]
  - Malaise [Unknown]

NARRATIVE: CASE EVENT DATE: 20200304
